FAERS Safety Report 18346470 (Version 2)
Quarter: 2020Q4

REPORT INFORMATION
  Report Type: Report from Study
  Country: None (occurrence: PR)
  Receive Date: 20201006
  Receipt Date: 20201029
  Transmission Date: 20210114
  Serious: Yes (Hospitalization, Other)
  Sender: FDA-Public Use
  Company Number: PR-ABBVIE-20K-131-3551693-00

PATIENT
  Age: 15 Year
  Sex: Female
  Weight: 64.47 kg

DRUGS (5)
  1. PEPCID [Concomitant]
     Active Substance: FAMOTIDINE
     Indication: RECTAL HAEMORRHAGE
  2. HUMIRA [Suspect]
     Active Substance: ADALIMUMAB
     Dosage: 80MG SECOND DOSE
     Route: 058
     Dates: start: 2020, end: 2020
  3. HUMIRA [Suspect]
     Active Substance: ADALIMUMAB
     Indication: CROHN^S DISEASE
     Dosage: 160MG INITIAL DOSE
     Route: 058
     Dates: start: 20200820, end: 20200820
  4. HUMIRA [Suspect]
     Active Substance: ADALIMUMAB
     Route: 058
     Dates: start: 20200917, end: 202009
  5. MORPHINE [Suspect]
     Active Substance: MORPHINE
     Indication: CROHN^S DISEASE
     Route: 065

REACTIONS (10)
  - Cholelithiasis [Recovered/Resolved]
  - Mucous stools [Unknown]
  - Asthenia [Recovered/Resolved]
  - Malaise [Not Recovered/Not Resolved]
  - Vomiting [Recovered/Resolved]
  - Dehydration [Not Recovered/Not Resolved]
  - Haematochezia [Not Recovered/Not Resolved]
  - Rectal haemorrhage [Not Recovered/Not Resolved]
  - Abdominal pain [Not Recovered/Not Resolved]
  - Vomiting [Unknown]

NARRATIVE: CASE EVENT DATE: 2020
